FAERS Safety Report 4442413-8 (Version None)
Quarter: 2004Q3

REPORT INFORMATION
  Report Type: 
  Country: None (occurrence: None)
  Receive Date: 20040903
  Receipt Date: 20040730
  Transmission Date: 20050211
  Serious: Yes (Other)
  Sender: FDA-Public Use
  Company Number: 2004UW16280

PATIENT
  Age: 67 Year
  Sex: Female
  Weight: 103.4201 kg

DRUGS (1)
  1. CRESTOR [Suspect]
     Indication: BLOOD CHOLESTEROL INCREASED
     Dosage: 10 MG PO
     Route: 048
     Dates: start: 20040601, end: 20040701

REACTIONS (3)
  - ASTHENIA [None]
  - DIFFICULTY IN WALKING [None]
  - MUSCULAR WEAKNESS [None]
